FAERS Safety Report 15534359 (Version 2)
Quarter: 2018Q4

REPORT INFORMATION
  Report Type: Spontaneous
  Country: JP (occurrence: JP)
  Receive Date: 20181021
  Receipt Date: 20181021
  Transmission Date: 20190205
  Serious: Yes (Life-Threatening, Hospitalization, Other)
  Sender: FDA-Public Use
  Company Number: PHHY2018JP125138

PATIENT
  Age: 34 Year
  Sex: Female

DRUGS (4)
  1. AZATHIOPRINE. [Suspect]
     Active Substance: AZATHIOPRINE
     Dosage: 100 MG, QD
     Route: 065
  2. AZATHIOPRINE. [Suspect]
     Active Substance: AZATHIOPRINE
     Indication: DERMATOMYOSITIS
     Dosage: 50 MG, QD
     Route: 065
  3. PREDNISOLONE. [Suspect]
     Active Substance: PREDNISOLONE
     Dosage: 30 MG, QD
     Route: 065
  4. PREDNISOLONE. [Suspect]
     Active Substance: PREDNISOLONE
     Indication: DERMATOMYOSITIS
     Dosage: 60 MG, QD
     Route: 065

REACTIONS (14)
  - Body temperature increased [Unknown]
  - Condition aggravated [Recovered/Resolved]
  - Pyrexia [Unknown]
  - Hepatomegaly [Unknown]
  - Haemophagocytic lymphohistiocytosis [Recovered/Resolved]
  - Gallbladder disorder [Unknown]
  - Skin lesion [Unknown]
  - Leukopenia [Recovering/Resolving]
  - Thrombocytopenia [Recovering/Resolving]
  - Herpes simplex [Recovered/Resolved]
  - Hyperferritinaemia [Unknown]
  - Abdominal tenderness [Unknown]
  - Blister [Unknown]
  - Gallbladder oedema [Unknown]
